FAERS Safety Report 13701710 (Version 3)
Quarter: 2017Q3

REPORT INFORMATION
  Report Type: Spontaneous
  Country: US (occurrence: US)
  Receive Date: 20170629
  Receipt Date: 20170717
  Transmission Date: 20171127
  Serious: Yes (Death)
  Sender: FDA-Public Use
  Company Number: US-PFIZER INC-2017269915

PATIENT
  Age: 40 Year
  Sex: Male
  Weight: 50.35 kg

DRUGS (6)
  1. METHADONE [Concomitant]
     Active Substance: METHADONE HYDROCHLORIDE
     Dosage: UNK
  2. SUTENT [Suspect]
     Active Substance: SUNITINIB MALATE
     Indication: NEUROENDOCRINE CARCINOMA
     Dosage: 25 MG, CYCLIC  (25 MG - 28 DAYS ON/14 DAYS OFF)
     Dates: start: 20170624, end: 20170704
  3. DEXAMETHASONE. [Concomitant]
     Active Substance: DEXAMETHASONE
     Dosage: UNK
  4. DILAUDID [Concomitant]
     Active Substance: HYDROMORPHONE HYDROCHLORIDE
     Dosage: UNK
  5. SELENIUM [Concomitant]
     Active Substance: SELENIUM
     Dosage: UNK
  6. VALIUM [Concomitant]
     Active Substance: DIAZEPAM
     Dosage: UNK

REACTIONS (8)
  - Product use in unapproved indication [Unknown]
  - Hyperaesthesia [Unknown]
  - Pain in extremity [Unknown]
  - Neoplasm progression [Fatal]
  - Muscle spasms [Unknown]
  - Tremor [Recovering/Resolving]
  - Neuralgia [Unknown]
  - Musculoskeletal pain [Unknown]

NARRATIVE: CASE EVENT DATE: 20170704
